FAERS Safety Report 4346805-7 (Version None)
Quarter: 2004Q1

REPORT INFORMATION
  Report Type: 
  Country: None (occurrence: None)
  Receive Date: 20040329
  Receipt Date: 20031215
  Transmission Date: 20041129
  Serious: No
  Sender: FDA-Public Use
  Company Number: USA031254718

PATIENT
  Age: 39 Year
  Sex: Female
  Weight: 51 kg

DRUGS (1)
  1. STRATTERA [Suspect]
     Indication: ATTENTION DEFICIT/HYPERACTIVITY DISORDER
     Dosage: 70 MG/DAY
     Dates: start: 20031112, end: 20031215

REACTIONS (3)
  - APATHY [None]
  - DRUG INEFFECTIVE [None]
  - SOMNOLENCE [None]
